FAERS Safety Report 21000837 (Version 1)
Quarter: 2022Q2

REPORT INFORMATION
  Report Type: Spontaneous
  Country: GB (occurrence: GB)
  Receive Date: 20220623
  Receipt Date: 20220623
  Transmission Date: 20220721
  Serious: Yes (Other)
  Sender: FDA-Public Use
  Company Number: GB-BRISTOL-MYERS SQUIBB COMPANY-2022-050438

PATIENT

DRUGS (2)
  1. EMTRICITABINE\TENOFOVIR [Suspect]
     Active Substance: EMTRICITABINE\TENOFOVIR
     Indication: Product used for unknown indication
     Dosage: 200/245 (UNITS UNSPECIFIED) OD (1 EVERY 1 DAY)
     Route: 065
  2. EVOTAZ [Suspect]
     Active Substance: ATAZANAVIR SULFATE\COBICISTAT
     Indication: Product used for unknown indication
     Dosage: 300/150 (UNSPECIFIED UNITS), OD ((1 EVERY 1 DAY)
     Route: 065

REACTIONS (2)
  - Adverse event [Unknown]
  - Gait disturbance [Unknown]
